FAERS Safety Report 9959281 (Version 1)
Quarter: 2014Q1

REPORT INFORMATION
  Report Type: Report from Study
  Country: US (occurrence: US)
  Receive Date: 20140305
  Receipt Date: 20140305
  Transmission Date: 20141002
  Serious: No
  Sender: FDA-Public Use
  Company Number: US-ABBVIE-13P-163-1104315-00

PATIENT
  Age: 73 Year
  Sex: Female

DRUGS (12)
  1. HUMIRA [Suspect]
     Indication: RHEUMATOID ARTHRITIS
     Route: 058
     Dates: start: 201302, end: 201304
  2. METOPROLOL [Concomitant]
     Indication: PRODUCT USED FOR UNKNOWN INDICATION
  3. AMLODIPINE [Concomitant]
     Indication: HYPERTENSION
     Dosage: 10 MG DAILY
  4. QUINAPRIL [Concomitant]
     Indication: HYPERTENSION
  5. PLAVIX [Concomitant]
     Indication: CARDIOVASCULAR EVENT PROPHYLAXIS
     Dosage: 75 MG DAILY
  6. ASA [Concomitant]
     Indication: CARDIOVASCULAR EVENT PROPHYLAXIS
  7. FOLIC ACID [Concomitant]
     Indication: RHEUMATOID ARTHRITIS
     Dosage: 1 MG 6 DAYS A WEEK
  8. METHOTREXATE [Concomitant]
     Indication: RHEUMATOID ARTHRITIS
     Dosage: 4 IN AM AND 4 PM IN PM SAME DAY OF WEEK
  9. VITAMIN D3 [Concomitant]
     Indication: PRODUCT USED FOR UNKNOWN INDICATION
     Dosage: 1000 IU DAILY
  10. CALCIUM [Concomitant]
     Indication: OSTEOPOROSIS
  11. PROLIA [Concomitant]
     Indication: OSTEOPOROSIS
  12. CRESTOR [Concomitant]
     Indication: BLOOD CHOLESTEROL INCREASED
     Dosage: 20 MG DAILY

REACTIONS (3)
  - Platelet count decreased [Recovering/Resolving]
  - Vitamin D increased [Recovering/Resolving]
  - Therapeutic response unexpected [Recovering/Resolving]
